FAERS Safety Report 11421872 (Version 3)
Quarter: 2016Q1

REPORT INFORMATION
  Report Type: Report from Study
  Country: US (occurrence: US)
  Receive Date: 20150827
  Receipt Date: 20160205
  Transmission Date: 20160525
  Serious: Yes (Hospitalization, Other)
  Sender: FDA-Public Use
  Company Number: US-AMGEN-USASL2015086045

PATIENT
  Age: 71 Year
  Sex: Female

DRUGS (3)
  1. ENBREL [Suspect]
     Active Substance: ETANERCEPT
     Indication: PSORIATIC ARTHROPATHY
     Dosage: 25 MG, 2 TIMES/WK
     Route: 065
  2. ENBREL [Suspect]
     Active Substance: ETANERCEPT
     Indication: RHEUMATOID ARTHRITIS
     Dosage: 50 MG, QWK
     Route: 065
  3. OTEZLA [Suspect]
     Active Substance: APREMILAST
     Indication: PRODUCT USED FOR UNKNOWN INDICATION
     Dosage: UNK
     Route: 048

REACTIONS (16)
  - Spinal pain [Recovered/Resolved]
  - Spinal fracture [Unknown]
  - Injection site pain [Unknown]
  - Drug administration error [Unknown]
  - Arthralgia [Unknown]
  - Paraesthesia [Unknown]
  - Spinal fusion surgery [Unknown]
  - Procedural complication [Unknown]
  - Nausea [Unknown]
  - Malaise [Unknown]
  - Ligament pain [Unknown]
  - Back pain [Unknown]
  - Pain [Unknown]
  - Myalgia [Unknown]
  - Throat irritation [Unknown]
  - Gait disturbance [Unknown]

NARRATIVE: CASE EVENT DATE: 1995
